FAERS Safety Report 14419837 (Version 1)
Quarter: 2018Q1

REPORT INFORMATION
  Report Type: Spontaneous
  Country: US (occurrence: US)
  Receive Date: 20180122
  Receipt Date: 20180122
  Transmission Date: 20180509
  Serious: Yes (Other)
  Sender: FDA-Public Use
  Company Number: US-PFIZER INC-2018024758

PATIENT
  Age: 78 Year
  Sex: Female
  Weight: 31.75 kg

DRUGS (3)
  1. GABAPENTIN. [Suspect]
     Active Substance: GABAPENTIN
     Indication: ARTHRITIS
  2. ATIVAN [Concomitant]
     Active Substance: LORAZEPAM
  3. GABAPENTIN. [Suspect]
     Active Substance: GABAPENTIN
     Indication: NEUROPATHY PERIPHERAL
     Dosage: ONCE A DAY OR TWICE A DAY
     Route: 048
     Dates: start: 2016, end: 2017

REACTIONS (14)
  - Aggression [Unknown]
  - Depressed mood [Recovered/Resolved]
  - Mental impairment [Unknown]
  - Diarrhoea [Recovered/Resolved]
  - Depression [Recovered/Resolved]
  - Intentional product use issue [Unknown]
  - Feeling abnormal [Recovered/Resolved]
  - Malaise [Unknown]
  - Anxiety [Recovered/Resolved]
  - Withdrawal syndrome [Recovered/Resolved]
  - Drug ineffective for unapproved indication [Unknown]
  - Drug hypersensitivity [Recovered/Resolved]
  - Gastric disorder [Recovered/Resolved]
  - Nightmare [Recovered/Resolved]

NARRATIVE: CASE EVENT DATE: 2016
